FAERS Safety Report 7932164-7 (Version None)
Quarter: 2011Q4

REPORT INFORMATION
  Report Type: 
  Country: None (occurrence: None)
  Receive Date: 20111121
  Receipt Date: 20111110
  Transmission Date: 20120403
  Serious: Yes (Other)
  Sender: FDA-Public Use
  Company Number: US-ASTRAZENECA-2011SE68645

PATIENT
  Age: 82 Year
  Sex: Female
  Weight: 49.9 kg

DRUGS (15)
  1. NEXIUM [Suspect]
     Indication: DYSPEPSIA
     Route: 048
     Dates: start: 20040101
  2. GABAPENTIN [Concomitant]
     Indication: NEUROPATHY PERIPHERAL
     Route: 048
  3. NEXIUM [Suspect]
     Indication: GASTROOESOPHAGEAL REFLUX DISEASE
     Route: 048
     Dates: start: 20040101
  4. DETROL LA [Concomitant]
     Indication: BLADDER DISORDER
     Route: 048
  5. GLUCOSAMINE [Concomitant]
  6. ASPIRIN [Concomitant]
     Indication: PLATELET AGGREGATION INHIBITION
     Route: 048
  7. FISHOIL [Concomitant]
  8. MELOXICAM [Concomitant]
     Indication: ARTHRITIS
     Dosage: 1-2 TABS DAILY
  9. MELOXICAM [Concomitant]
     Indication: BACK PAIN
     Dosage: 1-2 TABS DAILY
  10. MULTI-VITAMINS [Concomitant]
  11. BLACKSEED OIL [Concomitant]
  12. PLAVIX [Concomitant]
     Indication: PLATELET AGGREGATION INHIBITION
     Route: 048
  13. BIOTIN [Concomitant]
     Indication: HAIR DISORDER
  14. RANEXA [Concomitant]
     Indication: CARDIAC DISORDER
  15. HYOSCYAMINE [Concomitant]
     Indication: DIARRHOEA
     Route: 048

REACTIONS (3)
  - MYOCARDIAL INFARCTION [None]
  - VISUAL IMPAIRMENT [None]
  - DYSPEPSIA [None]
